FAERS Safety Report 8438679-X (Version None)
Quarter: 2012Q2

REPORT INFORMATION
  Report Type: 
  Country: None (occurrence: None)
  Receive Date: 20120611
  Receipt Date: 20120611
  Transmission Date: 20120825
  Serious: No
  Sender: FDA-Public Use
  Company Number: None

PATIENT
  Sex: Female

DRUGS (1)
  1. THYROID TAB [Suspect]
     Dosage: 60 MG QOD PO 90 MG QOD PO
     Route: 048
     Dates: start: 20120505

REACTIONS (7)
  - DRUG INEFFECTIVE [None]
  - ASTHENIA [None]
  - SUICIDAL IDEATION [None]
  - MOVEMENT DISORDER [None]
  - DEPRESSION [None]
  - PRODUCT QUALITY ISSUE [None]
  - LETHARGY [None]
